FAERS Safety Report 5746552-0 (Version None)
Quarter: 2008Q2

REPORT INFORMATION
  Report Type: 
  Country: None (occurrence: None)
  Receive Date: 20080522
  Receipt Date: 20080312
  Transmission Date: 20081010
  Serious: No
  Sender: FDA-Public Use
  Company Number: US-BRISTOL-MYERS SQUIBB COMPANY-14111736

PATIENT
  Age: 83 Year
  Sex: Female

DRUGS (6)
  1. CYTOXAN [Suspect]
     Indication: BREAST CANCER METASTATIC
     Dates: start: 20071201
  2. TAXOTERE [Suspect]
     Indication: BREAST CANCER METASTATIC
     Dates: start: 20071201
  3. COZAAR [Concomitant]
  4. VYTORIN [Concomitant]
  5. TOPROL-XL [Concomitant]
  6. PANTOPRAZOLE SODIUM [Concomitant]

REACTIONS (2)
  - ERYTHEMA [None]
  - SKIN LESION [None]
